FAERS Safety Report 5494956-6 (Version None)
Quarter: 2007Q4

REPORT INFORMATION
  Report Type: 
  Country: None (occurrence: None)
  Receive Date: 20071024
  Receipt Date: 20071015
  Transmission Date: 20080405
  Serious: Yes (Hospitalization, Disabling, Other)
  Sender: FDA-Public Use
  Company Number: B0488353A

PATIENT
  Age: 57 Year
  Sex: Female

DRUGS (2)
  1. ADARTREL [Suspect]
     Indication: RESTLESS LEGS SYNDROME
     Route: 048
  2. CITALOPRAM HYDROBROMIDE [Concomitant]
     Indication: DEPRESSION
     Dates: start: 20000101

REACTIONS (5)
  - COGNITIVE DISORDER [None]
  - EATING DISORDER [None]
  - FATIGUE [None]
  - IMMOBILE [None]
  - MEMORY IMPAIRMENT [None]
